FAERS Safety Report 16499438 (Version 1)
Quarter: 2019Q3

REPORT INFORMATION
  Report Type: Spontaneous
  Country: CN (occurrence: CN)
  Receive Date: 20190701
  Receipt Date: 20190701
  Transmission Date: 20191004
  Serious: Yes (Other)
  Sender: FDA-Public Use
  Company Number: CN-ROCHE-2344317

PATIENT
  Age: 47 Year
  Sex: Female

DRUGS (7)
  1. PYROTINIB [Concomitant]
     Active Substance: PYROTINIB
     Indication: NEOPLASM MALIGNANT
     Dosage: EVERY DAY
     Route: 065
  2. CYCLOPHOSPHAMIDE. [Suspect]
     Active Substance: CYCLOPHOSPHAMIDE
     Indication: NEOPLASM MALIGNANT
     Dosage: DAY1
     Route: 065
  3. HERCEPTIN [Suspect]
     Active Substance: TRASTUZUMAB
     Indication: NEOPLASM MALIGNANT
     Route: 065
  4. HERCEPTIN [Suspect]
     Active Substance: TRASTUZUMAB
     Dosage: 4 CYCLES
     Route: 065
  5. CAPECITABINE. [Concomitant]
     Active Substance: CAPECITABINE
     Indication: NEOPLASM MALIGNANT
     Dosage: DAY1-14
     Route: 048
  6. EPIRUBICIN [Suspect]
     Active Substance: EPIRUBICIN
     Indication: NEOPLASM MALIGNANT
     Dosage: 90 MG DAY AND 80 MG DAY 2 FOR 4 CYCLES
     Route: 065
  7. DOCETAXEL. [Suspect]
     Active Substance: DOCETAXEL
     Indication: NEOPLASM MALIGNANT
     Dosage: DAY1
     Route: 065

REACTIONS (4)
  - Gastrointestinal disorder [Unknown]
  - Dizziness [Unknown]
  - Haematotoxicity [Unknown]
  - Headache [Unknown]

NARRATIVE: CASE EVENT DATE: 201812
